FAERS Safety Report 7184436-4 (Version None)
Quarter: 2010Q4

REPORT INFORMATION
  Report Type: 
  Country: None (occurrence: None)
  Receive Date: 20101222
  Receipt Date: 20101214
  Transmission Date: 20110411
  Serious: Yes (Hospitalization, Other)
  Sender: FDA-Public Use
  Company Number: US-ASTRAZENECA-2010SE50285

PATIENT
  Age: 70 Year
  Sex: Female
  Weight: 88 kg

DRUGS (14)
  1. CRESTOR [Suspect]
     Indication: HYPERCHOLESTEROLAEMIA
     Route: 048
     Dates: start: 20091001
  2. CRESTOR [Suspect]
     Route: 048
     Dates: end: 20100201
  3. CRESTOR [Suspect]
     Route: 048
     Dates: start: 20100101, end: 20100101
  4. ASPIRIN [Concomitant]
  5. ASCORBIC ACID [Concomitant]
     Indication: VITAMIN SUPPLEMENTATION
  6. CINNAMON [Concomitant]
  7. PLAVIX [Concomitant]
  8. VITAMIN D [Concomitant]
     Indication: VITAMIN SUPPLEMENTATION
  9. FISH OIL [Concomitant]
  10. AMARYL [Concomitant]
     Indication: DIABETES MELLITUS
  11. MAGNESIUM [Concomitant]
     Indication: MINERAL SUPPLEMENTATION
  12. METFORMIN [Concomitant]
     Indication: DIABETES MELLITUS
  13. POTASSIUM [Concomitant]
     Indication: MINERAL SUPPLEMENTATION
  14. ALTACE [Concomitant]
     Indication: HYPERTENSION

REACTIONS (3)
  - CARDIAC DISORDER [None]
  - IMPLANTABLE DEFIBRILLATOR INSERTION [None]
  - PAIN IN EXTREMITY [None]
